FAERS Safety Report 5063366-8 (Version None)
Quarter: 2006Q3

REPORT INFORMATION
  Report Type: 
  Country: None (occurrence: None)
  Receive Date: 20060724
  Receipt Date: 20060712
  Transmission Date: 20061208
  Serious: Yes (Other)
  Sender: FDA-Public Use
  Company Number: CHPA2006US06931

PATIENT
  Age: 72 Year
  Sex: Male
  Weight: 63.5 kg

DRUGS (5)
  1. TRANSDERM SCOP [Suspect]
     Indication: PROPHYLAXIS OF NAUSEA AND VOMITING
     Dosage: 1.5 MG, Q72H, TRANSDERMAL
     Route: 062
     Dates: start: 20051001, end: 20060601
  2. TRANSDERM SCOP [Suspect]
     Indication: PROPHYLAXIS OF NAUSEA AND VOMITING
     Dosage: 1.5 MG, Q72H, TRANSDERMAL
     Route: 062
     Dates: end: 20060710
  3. LOVASTATIN [Concomitant]
  4. FLOMAX [Concomitant]
  5. NEXIUM [Concomitant]

REACTIONS (4)
  - DRUG WITHDRAWAL SYNDROME [None]
  - MOTION SICKNESS [None]
  - NAUSEA [None]
  - WEIGHT DECREASED [None]
